FAERS Safety Report 9668902 (Version 1)
Quarter: 2013Q4

REPORT INFORMATION
  Report Type: Spontaneous
  Country: US (occurrence: None)
  Receive Date: 20131104
  Receipt Date: 20131104
  Transmission Date: 20140711
  Serious: Yes (Hospitalization)
  Sender: FDA-Public Use
  Company Number: None

PATIENT
  Age: 8 Month
  Sex: Female
  Weight: 8.85 kg

DRUGS (1)
  1. ALBUTEROL SULFATE [Suspect]
     Indication: RESPIRATORY TRACT CONGESTION
     Dates: start: 20131007, end: 20131014

REACTIONS (7)
  - Diarrhoea [None]
  - Faeces discoloured [None]
  - Dermatitis diaper [None]
  - Poor quality drug administered [None]
  - Pain [None]
  - Blister [None]
  - Skin fissures [None]
